FAERS Safety Report 10522841 (Version 2)
Quarter: 2014Q4

REPORT INFORMATION
  Report Type: Spontaneous
  Country: FR (occurrence: FR)
  Receive Date: 20141016
  Receipt Date: 20141029
  Transmission Date: 20150528
  Serious: Yes (Hospitalization)
  Sender: FDA-Public Use
  Company Number: FR-PFIZER INC-2014278344

PATIENT
  Age: 64 Year
  Sex: Male

DRUGS (6)
  1. TENORMIN [Concomitant]
     Active Substance: ATENOLOL
     Dosage: TENORMINE 50
  2. NEURONTIN [Suspect]
     Active Substance: GABAPENTIN
     Dosage: 1600 MG, DAILY (400 MG IN MORNING, 600 MG AT NOON AND EVENING)
  3. NEURONTIN [Suspect]
     Active Substance: GABAPENTIN
     Dosage: 400 MG, 3X/DAY IN THE MORNING, AT NOON, AND IN EVENING
     Dates: start: 201409
  4. NEURONTIN [Suspect]
     Active Substance: GABAPENTIN
     Indication: FACIAL PAIN
     Dosage: PROGRESSIVE DOSE
     Dates: start: 201312
  5. NEURONTIN [Suspect]
     Active Substance: GABAPENTIN
     Dosage: 600 MG, 3X/DAY
  6. KARDEGIC [Concomitant]
     Active Substance: ASPIRIN LYSINE
     Dosage: KARDEGIC 75

REACTIONS (6)
  - Gastrooesophageal reflux disease [Unknown]
  - Nausea [Unknown]
  - Heart rate increased [Unknown]
  - Atrial fibrillation [Recovered/Resolved]
  - Drug intolerance [Unknown]
  - Chest pain [Unknown]
